FAERS Safety Report 20290937 (Version 2)
Quarter: 2022Q1

REPORT INFORMATION
  Report Type: Spontaneous
  Country: ES (occurrence: ES)
  Receive Date: 20220104
  Receipt Date: 20220125
  Transmission Date: 20220423
  Serious: Yes (Hospitalization)
  Sender: FDA-Public Use
  Company Number: None

PATIENT
  Age: 55 Year
  Sex: Male

DRUGS (4)
  1. OMEPRAZOLE [Suspect]
     Active Substance: OMEPRAZOLE
     Indication: Prophylaxis
     Dosage: UNIT DOSE : 20 MG,OMEPRAZOL (2141A)
     Route: 048
     Dates: start: 20210929, end: 20211115
  2. VANCOMYCIN [Suspect]
     Active Substance: VANCOMYCIN
     Indication: Endocarditis
     Dosage: VANCOMICINA (3197A) , UNIT DOSE : 1 G
     Route: 042
     Dates: start: 20211014, end: 20211111
  3. RIFAMPIN [Suspect]
     Active Substance: RIFAMPIN
     Indication: Endocarditis
     Dosage: RIFAMPICINA (2273A) , UNIT DOSE : 300 MG
     Route: 048
     Dates: start: 20210929, end: 20211111
  4. ACETAMINOPHEN [Concomitant]
     Active Substance: ACETAMINOPHEN
     Indication: Pain
     Dosage: PARACETAMOL (12A) , UNIT DOSE : 1 G
     Route: 065
     Dates: start: 20210929, end: 20211115

REACTIONS (1)
  - Drug reaction with eosinophilia and systemic symptoms [Recovering/Resolving]

NARRATIVE: CASE EVENT DATE: 20211107
